FAERS Safety Report 5946915-4 (Version None)
Quarter: 2008Q4

REPORT INFORMATION
  Report Type: 
  Country: None (occurrence: None)
  Receive Date: 20081107
  Receipt Date: 20081107
  Transmission Date: 20090506
  Serious: Yes (Other)
  Sender: FDA-Public Use
  Company Number: None

PATIENT
  Sex: Male
  Weight: 92 kg

DRUGS (1)
  1. REMICADE [Suspect]
     Indication: RHEUMATOID ARTHRITIS
     Dosage: 10MG/KG Q8WEEKS IV DRIP
     Route: 041
     Dates: start: 20021023, end: 20070502

REACTIONS (2)
  - NEUROENDOCRINE CARCINOMA [None]
  - SMALL CELL CARCINOMA [None]
